FAERS Safety Report 8246185-0 (Version None)
Quarter: 2012Q1

REPORT INFORMATION
  Report Type: 
  Country: None (occurrence: None)
  Receive Date: 20120330
  Receipt Date: 20120328
  Transmission Date: 20120608
  Serious: Yes (Other)
  Sender: FDA-Public Use
  Company Number: PHEH2012US006834

PATIENT
  Sex: Female

DRUGS (5)
  1. CORTISONE ACETATE [Concomitant]
     Dosage: 25 MG, UNK
  2. CARBAMAZEPINE [Suspect]
  3. CRESTOR [Concomitant]
     Dosage: 40 MG, UNK
  4. NIFEDIPINE [Concomitant]
     Dosage: 60 MG, UNK
  5. METOPROLOL SUCCINATE [Concomitant]
     Dosage: 100 MG, UNK

REACTIONS (1)
  - CONVULSION [None]
